FAERS Safety Report 20004494 (Version 1)
Quarter: 2021Q4

REPORT INFORMATION
  Report Type: Spontaneous
  Country: CA (occurrence: CA)
  Receive Date: 20211027
  Receipt Date: 20211027
  Transmission Date: 20220303
  Serious: Yes (Hospitalization, Other)
  Sender: FDA-Public Use
  Company Number: CA-TEVA-2021-CA-1969788

PATIENT
  Age: 77 Year
  Sex: Female

DRUGS (27)
  1. ACEBUTOLOL HYDROCHLORIDE [Suspect]
     Active Substance: ACEBUTOLOL HYDROCHLORIDE
     Indication: Coronary artery disease
     Dosage: 200 MILLIGRAM DAILY;
     Route: 065
  2. ACETAMINOPHEN [Suspect]
     Active Substance: ACETAMINOPHEN
     Indication: Pain
     Route: 065
  3. AMITRIPTYLINE [Suspect]
     Active Substance: AMITRIPTYLINE
     Indication: Insomnia
     Dosage: 75 MILLIGRAM DAILY;
     Route: 065
  4. AMLODIPINE [Suspect]
     Active Substance: AMLODIPINE BESYLATE
     Indication: Hypertension
     Dosage: 5 MILLIGRAM DAILY;
     Route: 065
  5. CARBAMAZEPINE [Suspect]
     Active Substance: CARBAMAZEPINE
     Indication: Seizure
     Dosage: 2 DOSAGE FORMS DAILY;
     Route: 065
  6. CARBAMAZEPINE [Suspect]
     Active Substance: CARBAMAZEPINE
     Dosage: 400 MILLIGRAM DAILY;
     Route: 065
  7. CYCLOBENZAPRINE [Suspect]
     Active Substance: CYCLOBENZAPRINE
     Indication: Pain
     Dosage: 15 MILLIGRAM DAILY;
     Route: 065
  8. DILTIAZEM [Suspect]
     Active Substance: DILTIAZEM
     Indication: Coronary artery disease
     Dosage: 360 MILLIGRAM DAILY;
     Route: 065
  9. FUROSEMIDE [Suspect]
     Active Substance: FUROSEMIDE
     Indication: Oedema
     Dosage: 40 MILLIGRAM DAILY;
     Route: 065
  10. LACTULOSE [Suspect]
     Active Substance: LACTULOSE
     Indication: Constipation
     Route: 048
  11. LEVOFLOXACIN [Suspect]
     Active Substance: LEVOFLOXACIN
     Indication: Urinary tract infection
     Dosage: 250 MILLIGRAM DAILY;
     Route: 065
  12. MAGNESIUM HYDROXIDE [Suspect]
     Active Substance: MAGNESIUM HYDROXIDE
     Indication: Constipation
     Dosage: 622 MILLIGRAM DAILY;
     Route: 065
  13. MORPHINE [Suspect]
     Active Substance: MORPHINE
     Indication: Pain
     Dosage: 10 MILLIGRAM DAILY;
     Route: 065
  14. OMEPRAZOLE [Suspect]
     Active Substance: OMEPRAZOLE
     Indication: Duodenal ulcer
     Dosage: 20 MILLIGRAM DAILY;
     Route: 048
  15. ROSUVASTATIN [Suspect]
     Active Substance: ROSUVASTATIN
     Indication: Cerebrovascular accident
     Dosage: 40 MILLIGRAM DAILY;
     Route: 048
  16. ALBUTEROL [Suspect]
     Active Substance: ALBUTEROL
     Indication: Product used for unknown indication
     Dosage: 800 MILLIGRAM DAILY;
     Route: 065
  17. AGGRENOX [Suspect]
     Active Substance: ASPIRIN\DIPYRIDAMOLE
     Indication: Cerebrovascular accident
     Dosage: 2 DOSAGE FORMS DAILY;
     Route: 065
  18. BISACODYL [Suspect]
     Active Substance: BISACODYL
     Indication: Constipation
     Route: 065
  19. CRANBERRY [Suspect]
     Active Substance: CRANBERRY
     Indication: Bladder disorder
     Dosage: 1500 MILLIGRAM DAILY;
     Route: 065
  20. GALANTAMINE [Suspect]
     Active Substance: GALANTAMINE
     Indication: Dementia
     Dosage: 16 MILLIGRAM DAILY;
     Route: 065
  21. GLUCOSAMINE [Suspect]
     Active Substance: GLUCOSAMINE
     Indication: Pain
     Dosage: 1000 MILLIGRAM DAILY;
     Route: 065
  22. LEVOTHYROXINE [Suspect]
     Active Substance: LEVOTHYROXINE
     Indication: Thyroid disorder
     Dosage: .088 MILLIGRAM DAILY;
     Route: 065
  23. NITROGLYCERIN [Suspect]
     Active Substance: NITROGLYCERIN
     Indication: Coronary artery disease
     Dosage: .6 MILLIGRAM DAILY;
     Route: 065
  24. OXAZEPAM [Suspect]
     Active Substance: OXAZEPAM
     Indication: Duodenal ulcer
     Dosage: 15 MILLIGRAM DAILY;
     Route: 065
  25. QUINAPRIL [Suspect]
     Active Substance: QUINAPRIL
     Indication: Hypertension
     Dosage: 40 MILLIGRAM DAILY;
     Route: 065
  26. SPIRIVA [Suspect]
     Active Substance: TIOTROPIUM BROMIDE MONOHYDRATE
     Indication: Chronic obstructive pulmonary disease
     Dosage: 18 MILLIGRAM DAILY;
     Route: 065
  27. PSYLLIUM HUSK [Concomitant]
     Active Substance: PSYLLIUM HUSK

REACTIONS (8)
  - Balance disorder [Recovering/Resolving]
  - Cognitive disorder [Recovering/Resolving]
  - Constipation [Recovering/Resolving]
  - Fall [Recovering/Resolving]
  - Hypotension [Recovering/Resolving]
  - Orthostatic hypotension [Recovering/Resolving]
  - Sedation [Recovering/Resolving]
  - Toxicity to various agents [Recovering/Resolving]
